FAERS Safety Report 4709133-3 (Version None)
Quarter: 2005Q3

REPORT INFORMATION
  Report Type: 
  Country: None (occurrence: None)
  Receive Date: 20050705
  Receipt Date: 20050623
  Transmission Date: 20060218
  Serious: Yes (Other)
  Sender: FDA-Public Use
  Company Number: 2005093086

PATIENT
  Sex: Female

DRUGS (5)
  1. PROVERA [Suspect]
     Indication: HORMONE REPLACEMENT THERAPY
     Dosage: ORAL
     Route: 048
     Dates: start: 19850401, end: 20010701
  2. DEPO-PROVERA [Suspect]
     Indication: HORMONE REPLACEMENT THERAPY
     Dosage: (1ST INJECTION UNKNOWN)
     Dates: start: 19850401, end: 19850401
  3. DEPO-PROVERA [Suspect]
     Indication: HORMONE REPLACEMENT THERAPY
     Dosage: (1ST INJECTION UNKNOWN)
     Dates: start: 20010701, end: 20010701
  4. PREMARIN [Suspect]
     Indication: HORMONE REPLACEMENT THERAPY
     Dates: start: 19850401, end: 20010701
  5. PREMPRO [Suspect]
     Indication: HORMONE REPLACEMENT THERAPY
     Dates: start: 19850401, end: 20010701

REACTIONS (1)
  - BREAST CANCER FEMALE [None]
